FAERS Safety Report 13858088 (Version 1)
Quarter: 2017Q3

REPORT INFORMATION
  Report Type: Report from Study
  Country: US (occurrence: US)
  Receive Date: 20170811
  Receipt Date: 20170811
  Transmission Date: 20171127
  Serious: Yes (Other)
  Sender: FDA-Public Use
  Company Number: US-AMGEN-USASL2017120526

PATIENT
  Age: 65 Year
  Sex: Male

DRUGS (11)
  1. PROCRIT [Suspect]
     Active Substance: ERYTHROPOIETIN
     Dosage: 40000 UNIT, Q3WK
     Route: 058
  2. PROCRIT [Suspect]
     Active Substance: ERYTHROPOIETIN
     Dosage: 40000 UNIT, Q2WK
     Route: 058
  3. FINASTERIDE. [Concomitant]
     Active Substance: FINASTERIDE
     Dosage: UNK
  4. SODIUM BICARBONATE. [Concomitant]
     Active Substance: SODIUM BICARBONATE
     Dosage: 3 DF, QD
     Route: 048
  5. NEUPOGEN [Suspect]
     Active Substance: FILGRASTIM
     Dosage: UNK UNK, 3 TIMES/WK
     Route: 065
     Dates: start: 20140523
  6. IMBRUVICA [Suspect]
     Active Substance: IBRUTINIB
     Indication: B-CELL LYMPHOMA
     Dosage: UNK
     Route: 048
     Dates: start: 20160219
  7. RITUXAN [Concomitant]
     Active Substance: RITUXIMAB
     Indication: B-CELL LYMPHOMA
     Dosage: UNK
     Dates: end: 201506
  8. IMBRUVICA [Suspect]
     Active Substance: IBRUTINIB
     Dosage: 420 MG, QD
     Route: 048
     Dates: start: 201603
  9. ZOLOFT [Concomitant]
     Active Substance: SERTRALINE HYDROCHLORIDE
     Dosage: UNK
  10. PROCRIT [Suspect]
     Active Substance: ERYTHROPOIETIN
     Indication: PRODUCT USED FOR UNKNOWN INDICATION
     Dosage: 40000 UNIT, QWK
     Route: 058
     Dates: start: 201403
  11. NEUPOGEN [Suspect]
     Active Substance: FILGRASTIM
     Indication: NEUTROPENIA
     Dosage: UNK UNK, 3 TIMES/WK
     Route: 065
     Dates: start: 201403, end: 2014

REACTIONS (13)
  - Cough [Recovered/Resolved]
  - Fatigue [Unknown]
  - Gastrointestinal haemorrhage [Unknown]
  - Large intestinal obstruction [Unknown]
  - B-cell lymphoma [Unknown]
  - Intestinal mass [Unknown]
  - Tooth disorder [Unknown]
  - Gastrooesophageal reflux disease [Unknown]
  - Ascites [Unknown]
  - Oropharyngeal pain [Unknown]
  - Neutrophil count decreased [Unknown]
  - Helicobacter gastritis [Unknown]
  - Rash generalised [Unknown]

NARRATIVE: CASE EVENT DATE: 2014
